FAERS Safety Report 6419475-1 (Version None)
Quarter: 2009Q4

REPORT INFORMATION
  Report Type: 
  Country: None (occurrence: None)
  Receive Date: 20091027
  Receipt Date: 20090811
  Transmission Date: 20100525
  Serious: Yes (Hospitalization)
  Sender: FDA-Public Use
  Company Number: A-US2007-16128

PATIENT
  Age: 17 Year
  Sex: Female
  Weight: 58.2 kg

DRUGS (6)
  1. MIGLUSTAT(MIGLUSTAT L. TS CAPSULE 100 MG) CAPSULE [Suspect]
     Indication: TAY-SACHS DISEASE
     Dosage: 200 MG, TID, ORAL; 100 MG, TID, ORAL; 500 MG/DAY, ORAL
     Route: 048
     Dates: start: 20050430
  2. XANAX [Concomitant]
  3. LEXAPRO [Concomitant]
  4. MINOCYCLINE (MINOCYCLINE HYDROCHLORIDE) [Concomitant]
  5. ARIPIPRAZONE [Concomitant]
  6. MODAFINIL [Concomitant]

REACTIONS (13)
  - ACTIVITIES OF DAILY LIVING IMPAIRED [None]
  - ACUTE PSYCHOSIS [None]
  - AGITATION [None]
  - CEREBELLAR ATROPHY [None]
  - CONFABULATION [None]
  - DIARRHOEA [None]
  - DISEASE PROGRESSION [None]
  - DYSGRAPHIA [None]
  - GAIT DISTURBANCE [None]
  - PSYCHOMOTOR HYPERACTIVITY [None]
  - TAY-SACHS DISEASE [None]
  - TREMOR [None]
  - URINARY INCONTINENCE [None]
